FAERS Safety Report 25263803 (Version 2)
Quarter: 2025Q2

REPORT INFORMATION
  Report Type: Report from Study
  Country: CA (occurrence: CA)
  Receive Date: 20250502
  Receipt Date: 20250529
  Transmission Date: 20250716
  Serious: Yes (Hospitalization, Other)
  Sender: TAKEDA
  Company Number: CA-TAKEDA-2025TUS042362

PATIENT
  Sex: Male

DRUGS (3)
  1. VEDOLIZUMAB [Suspect]
     Active Substance: VEDOLIZUMAB
     Indication: Colitis ulcerative
  2. PENTASA [Concomitant]
     Active Substance: MESALAMINE
  3. PENTASA [Concomitant]
     Active Substance: MESALAMINE

REACTIONS (3)
  - Nephrolithiasis [Unknown]
  - Colitis ulcerative [Unknown]
  - Urinary tract infection [Unknown]
